FAERS Safety Report 6391450-5 (Version None)
Quarter: 2009Q4

REPORT INFORMATION
  Report Type: 
  Country: None (occurrence: None)
  Receive Date: 20091005
  Receipt Date: 20090921
  Transmission Date: 20100525
  Serious: Yes (Hospitalization)
  Sender: FDA-Public Use
  Company Number: 2009SP002463

PATIENT
  Age: 60 Year
  Sex: Male
  Weight: 80 kg

DRUGS (5)
  1. ALVESCO [Suspect]
     Indication: CHRONIC OBSTRUCTIVE PULMONARY DISEASE
     Dosage: 160 UG; BID; INHALATION
     Route: 055
     Dates: start: 20081114, end: 20090807
  2. ALVESCO [Suspect]
     Indication: WHEEZING
     Dosage: 160 UG; BID; INHALATION
     Route: 055
     Dates: start: 20081114, end: 20090807
  3. ALVESCO [Suspect]
     Indication: CHRONIC OBSTRUCTIVE PULMONARY DISEASE
     Dosage: 160 UG; BID; INHALATION
     Route: 055
     Dates: start: 20090812
  4. ALVESCO [Suspect]
     Indication: WHEEZING
     Dosage: 160 UG; BID; INHALATION
     Route: 055
     Dates: start: 20090812
  5. BROVANA [Concomitant]

REACTIONS (6)
  - DIVERTICULUM [None]
  - ESCHERICHIA BACTERAEMIA [None]
  - HEADACHE [None]
  - HEART RATE INCREASED [None]
  - HYPOXIA [None]
  - PNEUMONIA [None]
